FAERS Safety Report 5131294-5 (Version None)
Quarter: 2006Q4

REPORT INFORMATION
  Report Type: 
  Country: None (occurrence: None)
  Receive Date: 20061020
  Receipt Date: 20061011
  Transmission Date: 20070319
  Serious: Yes (Hospitalization)
  Sender: FDA-Public Use
  Company Number: IT-JNJFOC-20061002849

PATIENT
  Sex: Male

DRUGS (1)
  1. REMICADE [Suspect]
     Indication: PSORIASIS
     Route: 042

REACTIONS (5)
  - AORTIC ANEURYSM [None]
  - AORTIC EMBOLUS [None]
  - AORTIC OCCLUSION [None]
  - AORTIC THROMBOSIS [None]
  - CORONARY ARTERY OCCLUSION [None]
